FAERS Safety Report 15539177 (Version 5)
Quarter: 2019Q1

REPORT INFORMATION
  Report Type: Report from Study
  Country: US (occurrence: US)
  Receive Date: 20181022
  Receipt Date: 20190308
  Transmission Date: 20190417
  Serious: Yes (Hospitalization, Other)
  Sender: FDA-Public Use
  Company Number: US-ACTELION-A-NJ2017-155064

PATIENT
  Age: 54 Year
  Sex: Female
  Weight: 71.2 kg

DRUGS (5)
  1. TYVASO [Concomitant]
     Active Substance: TREPROSTINIL
     Dosage: UNK
     Dates: end: 20181001
  2. OPSUMIT [Suspect]
     Active Substance: MACITENTAN
     Indication: PULMONARY HYPERTENSION
     Dosage: 10 MG, QD
     Route: 048
  3. REMODULIN [Concomitant]
     Active Substance: TREPROSTINIL
     Dosage: 0.014 ML/HR, UNK
  4. ADEMPAS [Concomitant]
     Active Substance: RIOCIGUAT
  5. REMODULIN [Concomitant]
     Active Substance: TREPROSTINIL
     Dosage: UNK
     Route: 058
     Dates: start: 20181004

REACTIONS (17)
  - Right ventricular dysfunction [Unknown]
  - Therapy change [Unknown]
  - Haemodynamic test abnormal [Unknown]
  - Malaise [Unknown]
  - Disease progression [Unknown]
  - Pulmonary arterial pressure increased [Unknown]
  - Dyspnoea [Unknown]
  - Headache [Recovered/Resolved]
  - Device issue [Unknown]
  - Condition aggravated [Unknown]
  - Infection [Unknown]
  - Oedema peripheral [Unknown]
  - Sleep disorder due to general medical condition, hypersomnia type [Unknown]
  - Transplant evaluation [Unknown]
  - Pulmonary arterial hypertension [Unknown]
  - Pneumonia [Unknown]
  - Device infusion issue [Unknown]

NARRATIVE: CASE EVENT DATE: 201802
